FAERS Safety Report 4926046-2 (Version None)
Quarter: 2006Q1

REPORT INFORMATION
  Report Type: 
  Country: None (occurrence: None)
  Receive Date: 20060228
  Receipt Date: 20050804
  Transmission Date: 20060701
  Serious: No
  Sender: FDA-Public Use
  Company Number: US-GLAXOSMITHKLINE-A0568949A

PATIENT
  Age: 44 Year
  Sex: Male
  Weight: 88 kg

DRUGS (4)
  1. LAMICTAL [Suspect]
     Indication: FIBROMYALGIA
     Dosage: 25MG PER DAY
     Route: 048
     Dates: start: 20050722
  2. METHADONE [Concomitant]
  3. PREVACID [Concomitant]
  4. DOCUSATE SODIUM [Concomitant]

REACTIONS (1)
  - DIZZINESS [None]
